FAERS Safety Report 7664259-X (Version None)
Quarter: 2011Q3

REPORT INFORMATION
  Report Type: 
  Country: None (occurrence: None)
  Receive Date: 20110806
  Receipt Date: 20110113
  Transmission Date: 20111222
  Serious: No
  Sender: FDA-Public Use
  Company Number: US-ABBOTT-11P-163-0697422-00

PATIENT
  Sex: Female
  Weight: 63.56 kg

DRUGS (4)
  1. AMBIEN [Concomitant]
     Indication: PRODUCT USED FOR UNKNOWN INDICATION
     Dosage: PRN
  2. NIASPAN [Suspect]
     Indication: ARTERIOSCLEROSIS
  3. NIASPAN [Suspect]
     Indication: BLOOD CHOLESTEROL
     Dates: start: 20110106
  4. SEASONIQUE [Concomitant]
     Indication: CONTRACEPTION

REACTIONS (7)
  - FLUSHING [None]
  - SKIN BURNING SENSATION [None]
  - PARAESTHESIA [None]
  - ABDOMINAL DISCOMFORT [None]
  - DIARRHOEA [None]
  - ABDOMINAL PAIN UPPER [None]
  - FAECES DISCOLOURED [None]
